FAERS Safety Report 16063420 (Version 1)
Quarter: 2019Q1

REPORT INFORMATION
  Report Type: Spontaneous
  Country: IT (occurrence: IT)
  Receive Date: 20190312
  Receipt Date: 20190312
  Transmission Date: 20190418
  Serious: Yes (Other)
  Sender: FDA-Public Use
  Company Number: IT-PFIZER INC-2019104274

PATIENT
  Age: 12 Year
  Sex: Female
  Weight: 43 kg

DRUGS (4)
  1. DELTACORTENE [Concomitant]
     Active Substance: PREDNISONE
     Indication: ACUTE LYMPHOCYTIC LEUKAEMIA
     Dosage: 75 MG, UNK
     Route: 048
  2. PURINETHOL [Suspect]
     Active Substance: MERCAPTOPURINE
     Indication: ACUTE LYMPHOCYTIC LEUKAEMIA
     Dosage: 100 MG, ALTERNATE DAY
     Route: 048
     Dates: start: 20180621, end: 20180722
  3. ARACYTIN [Suspect]
     Active Substance: CYTARABINE
     Indication: ACUTE LYMPHOCYTIC LEUKAEMIA
     Dosage: 94 MG, CYCLIC
     Route: 042
     Dates: start: 20180621, end: 20180721
  4. PURINETHOL [Suspect]
     Active Substance: MERCAPTOPURINE
     Dosage: 50 MG, ALTERNATE DAY
     Route: 048
     Dates: start: 20180621, end: 20180722

REACTIONS (1)
  - Aplasia [Recovered/Resolved]

NARRATIVE: CASE EVENT DATE: 20180707
